FAERS Safety Report 14750315 (Version 4)
Quarter: 2018Q2

REPORT INFORMATION
  Report Type: Spontaneous
  Country: US (occurrence: US)
  Receive Date: 20180412
  Receipt Date: 20180613
  Transmission Date: 20180711
  Serious: Yes (Hospitalization, Other)
  Sender: FDA-Public Use
  Company Number: US-BIOGEN-2018BI00551547

PATIENT
  Age: 50 Year
  Sex: Male

DRUGS (2)
  1. TYSABRI [Suspect]
     Active Substance: NATALIZUMAB
     Indication: MULTIPLE SCLEROSIS
     Route: 042
     Dates: start: 2015
  2. TYSABRI [Suspect]
     Active Substance: NATALIZUMAB
     Route: 042
     Dates: start: 20160205

REACTIONS (3)
  - Bone cancer [Recovered/Resolved]
  - Gait disturbance [Not Recovered/Not Resolved]
  - Prostate cancer [Recovered/Resolved]

NARRATIVE: CASE EVENT DATE: 2017
